FAERS Safety Report 5380126-9 (Version None)
Quarter: 2007Q3

REPORT INFORMATION
  Report Type: 
  Country: None (occurrence: None)
  Receive Date: 20070706
  Receipt Date: 20070427
  Transmission Date: 20080115
  Serious: No
  Sender: FDA-Public Use
  Company Number: A0649079A

PATIENT
  Age: 51 Year
  Sex: Female

DRUGS (7)
  1. TYKERB [Suspect]
     Indication: BREAST CANCER
     Dosage: 1250MG PER DAY
     Route: 048
     Dates: start: 20070419
  2. ABRAXANE [Concomitant]
  3. MORPHINE [Concomitant]
  4. SYNTHROID [Concomitant]
  5. NEXIUM [Concomitant]
  6. VESICARE [Concomitant]
  7. UNKNOWN MEDICATION [Concomitant]

REACTIONS (1)
  - RASH [None]
